FAERS Safety Report 8383815-7 (Version None)
Quarter: 2012Q2

REPORT INFORMATION
  Report Type: 
  Country: None (occurrence: None)
  Receive Date: 20120524
  Receipt Date: 20120518
  Transmission Date: 20120825
  Serious: Yes (Other)
  Sender: FDA-Public Use
  Company Number: GR-AMGEN-GRCSP2012031503

PATIENT
  Age: 61 Year
  Sex: Female

DRUGS (3)
  1. PROLIA [Suspect]
     Indication: OSTEOPOROSIS
     Dosage: 60 MG, Q6MO
  2. ANTIPSYCHOTICS [Concomitant]
  3. VITAMIN D [Concomitant]

REACTIONS (4)
  - TOOTH EXTRACTION [None]
  - INFLAMMATION [None]
  - GINGIVAL INFECTION [None]
  - OSTEONECROSIS OF JAW [None]
